FAERS Safety Report 26036068 (Version 1)
Quarter: 2025Q4

REPORT INFORMATION
  Report Type: Spontaneous
  Country: US (occurrence: None)
  Receive Date: 20251112
  Receipt Date: 20251112
  Transmission Date: 20260118
  Serious: Yes (Other)
  Sender: FDA-CTU
  Company Number: None

PATIENT
  Age: 41 Year
  Sex: Female
  Weight: 96.62 kg

DRUGS (1)
  1. EPCLUSA [Suspect]
     Active Substance: SOFOSBUVIR\VELPATASVIR
     Indication: Hepatitis C
     Dosage: 400MG/100MG 1 DAILY ORAL ?
     Route: 048
     Dates: start: 20241118

REACTIONS (2)
  - Treatment failure [None]
  - Therapy change [None]

NARRATIVE: CASE EVENT DATE: 20241118
